FAERS Safety Report 7575597-3 (Version None)
Quarter: 2011Q2

REPORT INFORMATION
  Report Type: 
  Country: None (occurrence: None)
  Receive Date: 20110627
  Receipt Date: 20110615
  Transmission Date: 20111010
  Serious: Yes (Hospitalization)
  Sender: FDA-Public Use
  Company Number: JP-UCBSA-031391

PATIENT
  Sex: Male

DRUGS (13)
  1. NIFEDIPINE [Concomitant]
     Dates: start: 20090725
  2. KALLIDINOGENASE [Concomitant]
     Dates: start: 20100221
  3. CERTOLIZUMAB PEGOL [Suspect]
     Dosage: STUDY RA0006: WEEK 0, 2 AND 4
     Route: 058
     Dates: start: 20100129, end: 20100101
  4. CERTOLIZUMAB PEGOL [Suspect]
     Route: 058
     Dates: start: 20100524
  5. SULPIRIDE [Concomitant]
     Dates: start: 20110115
  6. DOXAZOSIN MESYLATE [Concomitant]
     Dates: start: 20101107
  7. SERTRALINE HYDROCHLORIDE [Concomitant]
     Dates: start: 20110115
  8. ETIZOLAM [Concomitant]
     Dates: start: 20110115
  9. ETODOLAC [Concomitant]
     Dosage: AS NEEDED (MAXIMUM 400MG)
     Dates: start: 20110119
  10. ISONIAZID [Concomitant]
     Dates: start: 20100108
  11. CERTOLIZUMAB PEGOL [Suspect]
     Indication: RHEUMATOID ARTHRITIS
     Dosage: STUDY RA0006: FROM WEEK 6 UP TO 22.
     Route: 058
     Dates: start: 20100101, end: 20100507
  12. ALLOPURINOL [Concomitant]
     Dates: start: 20090729
  13. CARBAZOCHROME SODIUM SULFONATE [Concomitant]
     Dates: start: 20100802

REACTIONS (4)
  - CONDITION AGGRAVATED [None]
  - DEPRESSION [None]
  - CALCULUS URETERIC [None]
  - HYDRONEPHROSIS [None]
